FAERS Safety Report 18901776 (Version 1)
Quarter: 2021Q1

REPORT INFORMATION
  Report Type: Spontaneous
  Country: US (occurrence: US)
  Receive Date: 20210217
  Receipt Date: 20210217
  Transmission Date: 20210420
  Serious: Yes (Hospitalization, Other)
  Sender: FDA-Public Use
  Company Number: US-CIPLA LTD.-2021US00930

PATIENT

DRUGS (13)
  1. PROPAFENONE. [Suspect]
     Active Substance: PROPAFENONE
     Indication: PALPITATIONS
     Dosage: 225 MILLIGRAM, BID
     Route: 065
     Dates: start: 202007
  2. NP THYROID [Concomitant]
     Active Substance: LEVOTHYROXINE\LIOTHYRONINE
     Dosage: 60 MILLIGRAM, QD
     Route: 048
     Dates: start: 2020
  3. METOPROLOL. [Suspect]
     Active Substance: METOPROLOL
     Indication: PRODUCT USED FOR UNKNOWN INDICATION
     Dosage: UNK
     Route: 065
     Dates: start: 202009, end: 202010
  4. NP THYROID [Concomitant]
     Active Substance: LEVOTHYROXINE\LIOTHYRONINE
     Dosage: 120 MILLIGRAM, QD
     Route: 048
     Dates: start: 202012
  5. NITROFURANTOIN. [Suspect]
     Active Substance: NITROFURANTOIN
     Indication: PALPITATIONS
     Dosage: UNK
     Route: 065
     Dates: start: 202007, end: 202010
  6. NP THYROID [Concomitant]
     Active Substance: LEVOTHYROXINE\LIOTHYRONINE
     Indication: HYPOTHYROIDISM
     Dosage: 30 MILLIGRAM, QD
     Route: 048
     Dates: start: 2020
  7. NP THYROID [Concomitant]
     Active Substance: LEVOTHYROXINE\LIOTHYRONINE
     Dosage: 90 MILLIGRAM, QD
     Route: 048
     Dates: start: 202005
  8. PROPAFENONE. [Suspect]
     Active Substance: PROPAFENONE
     Dosage: 150 MILLIGRAM, TID
     Route: 048
     Dates: start: 20210117
  9. NP THYROID [Concomitant]
     Active Substance: LEVOTHYROXINE\LIOTHYRONINE
     Dosage: 15 MILLIGRAM, QD
     Route: 048
     Dates: start: 2020
  10. FLECAINIDE [Suspect]
     Active Substance: FLECAINIDE
     Indication: PRODUCT USED FOR UNKNOWN INDICATION
     Dosage: 50 MILLIGRAM, BID
     Route: 065
     Dates: start: 202009, end: 202010
  11. XARELTO [Suspect]
     Active Substance: RIVAROXABAN
     Indication: PALPITATIONS
     Dosage: UNK
     Route: 065
     Dates: start: 202007
  12. HYDROCHLOROTHIAZIDE. [Concomitant]
     Active Substance: HYDROCHLOROTHIAZIDE
     Indication: OEDEMA
     Dosage: UNK
     Route: 065
  13. HYDROCHLOROTHIAZIDE. [Concomitant]
     Active Substance: HYDROCHLOROTHIAZIDE
     Indication: BLOOD POTASSIUM ABNORMAL

REACTIONS (6)
  - Hip fracture [Unknown]
  - Feeling abnormal [Recovered/Resolved]
  - Nausea [Recovered/Resolved]
  - Malaise [Recovered/Resolved]
  - Dizziness [Recovered/Resolved]
  - Fall [Recovered/Resolved]

NARRATIVE: CASE EVENT DATE: 202009
